FAERS Safety Report 7107381-9 (Version None)
Quarter: 2010Q4

REPORT INFORMATION
  Report Type: 
  Country: None (occurrence: None)
  Receive Date: 20101112
  Receipt Date: 20101112
  Transmission Date: 20110411
  Serious: No
  Sender: FDA-Public Use
  Company Number: None

PATIENT
  Age: 69 Year
  Sex: Female
  Weight: 54.4316 kg

DRUGS (3)
  1. BUSPIRONE HCL [Suspect]
     Indication: ANXIETY
     Dosage: 5 MG BID PO
     Route: 048
     Dates: start: 20100828, end: 20101027
  2. BUSPIRONE HCL [Suspect]
     Indication: CONVULSION
     Dosage: 5 MG BID PO
     Route: 048
     Dates: start: 20100828, end: 20101027
  3. BUSPIRONE HCL [Suspect]
     Indication: SCHIZOAFFECTIVE DISORDER
     Dosage: 5 MG BID PO
     Route: 048
     Dates: start: 20100828, end: 20101027

REACTIONS (1)
  - URINARY RETENTION [None]
